FAERS Safety Report 18799297 (Version 2)
Quarter: 2021Q1

REPORT INFORMATION
  Report Type: Spontaneous
  Country: US (occurrence: US)
  Receive Date: 20210128
  Receipt Date: 20210223
  Transmission Date: 20210419
  Serious: Yes (Other)
  Sender: FDA-Public Use
  Company Number: US-ROCHE-2758494

PATIENT
  Sex: Male

DRUGS (2)
  1. HEMLIBRA [Suspect]
     Active Substance: EMICIZUMAB-KXWH
     Indication: FACTOR VIII DEFICIENCY
     Dosage: STRENGTH 60MG/0.4ML
     Route: 058
     Dates: start: 2014
  2. AMICAR [Concomitant]
     Active Substance: AMINOCAPROIC ACID

REACTIONS (1)
  - Post procedural haemorrhage [Unknown]
